FAERS Safety Report 4688026-4 (Version None)
Quarter: 2005Q2

REPORT INFORMATION
  Report Type: 
  Country: None (occurrence: None)
  Receive Date: 20050610
  Receipt Date: 20050601
  Transmission Date: 20051028
  Serious: Yes (Life-Threatening)
  Sender: FDA-Public Use
  Company Number: 2005AP03154

PATIENT
  Age: 70 Year
  Sex: Male

DRUGS (10)
  1. CARBOCAIN [Suspect]
     Indication: EPIDURAL ANAESTHESIA
     Route: 008
  2. DIPRIVAN [Suspect]
     Indication: INDUCTION OF ANAESTHESIA
     Route: 042
  3. MILNACIPRAN [Suspect]
     Indication: BIPOLAR I DISORDER
     Route: 048
  4. LITHIUM CARBONATE [Concomitant]
     Indication: BIPOLAR I DISORDER
     Route: 048
  5. TRIAZOLAM [Concomitant]
     Route: 048
  6. ATROPINE SULFATE [Concomitant]
     Route: 030
  7. VECURONIUM BROMIDE [Concomitant]
  8. NITROUS OXIDE [Concomitant]
     Route: 055
  9. SEVOFLURANE [Concomitant]
     Route: 055
  10. MORPHINE HCL ELIXIR [Concomitant]
     Route: 008

REACTIONS (2)
  - BLOOD PRESSURE DECREASED [None]
  - DRUG INTERACTION [None]
